FAERS Safety Report 8580068-1 (Version None)
Quarter: 2012Q3

REPORT INFORMATION
  Report Type: 
  Country: None (occurrence: None)
  Receive Date: 20120808
  Receipt Date: 20120806
  Transmission Date: 20120928
  Serious: Yes (Death)
  Sender: FDA-Public Use
  Company Number: US-CELGENEUS-163-21880-12070664

PATIENT
  Sex: Female
  Weight: 52.21 kg

DRUGS (9)
  1. LEXAPRO [Concomitant]
     Dosage: 20 MILLIGRAM
     Route: 065
  2. CYANOCOBALAMIN [Concomitant]
     Dosage: 3/35/2 MG
     Route: 065
  3. CYPROHEPTADINE HCL [Concomitant]
     Dosage: 4 MILLIGRAM
     Route: 065
  4. KLOR-CON [Concomitant]
     Dosage: 10 MILLIEQUIVALENTS
     Route: 065
  5. REVLIMID [Suspect]
     Indication: MULTIPLE MYELOMA
     Dosage: 10 MILLIGRAM
     Route: 048
     Dates: start: 20120504, end: 20120611
  6. ASPIRIN [Concomitant]
     Dosage: 81 MILLIGRAM
     Route: 065
  7. CARAFATE [Concomitant]
     Dosage: 1 GRAM
     Route: 065
  8. DILTIAZEM [Concomitant]
     Dosage: 120 MILLIGRAM
     Route: 065
  9. FUROSEMIDE [Concomitant]
     Dosage: 40 MILLIGRAM
     Route: 065

REACTIONS (1)
  - PNEUMONIA [None]
